FAERS Safety Report 15983678 (Version 2)
Quarter: 2019Q1

REPORT INFORMATION
  Report Type: Spontaneous
  Country: US (occurrence: US)
  Receive Date: 20190220
  Receipt Date: 20190301
  Transmission Date: 20190418
  Serious: No
  Sender: FDA-Public Use
  Company Number: US-BIOGEN-2019BI00697750

PATIENT
  Sex: Female

DRUGS (1)
  1. AVONEX [Suspect]
     Active Substance: INTERFERON BETA-1A
     Indication: MULTIPLE SCLEROSIS
     Route: 065
     Dates: start: 20150323

REACTIONS (8)
  - Nausea [Recovered/Resolved]
  - Gastric disorder [Recovered/Resolved]
  - Multiple sclerosis [Not Recovered/Not Resolved]
  - Skin reaction [Recovered/Resolved]
  - Vomiting [Unknown]
  - Product dose omission [Unknown]
  - Feeling abnormal [Unknown]
  - Abdominal pain upper [Recovered/Resolved]
